FAERS Safety Report 9310571 (Version 1)
Quarter: 2013Q2

REPORT INFORMATION
  Report Type: Spontaneous
  Country: GB (occurrence: GB)
  Receive Date: 20130527
  Receipt Date: 20130527
  Transmission Date: 20140414
  Serious: Yes (Other)
  Sender: FDA-Public Use
  Company Number: GB-009507513-1305GBR011949

PATIENT
  Age: 17 Year
  Sex: Female
  Weight: 48 kg

DRUGS (6)
  1. NEXPLANON [Suspect]
     Indication: CONTRACEPTION
     Dosage: 68 MG, QD
     Route: 059
     Dates: start: 20130410, end: 20130429
  2. BECONASE [Concomitant]
     Indication: SEASONAL ALLERGY
     Route: 045
  3. CETIRIZINE HYDROCHLORIDE [Concomitant]
     Indication: SEASONAL ALLERGY
     Dosage: 10 MG 1/1 DAYS
     Route: 048
     Dates: start: 2013
  4. DOMPERIDONE [Concomitant]
     Indication: MIGRAINE
     Dosage: 10 MG, AS NECESSARY
     Route: 048
  5. CROMOLYN SODIUM [Concomitant]
     Indication: SEASONAL ALLERGY
  6. SUMATRIPTAN [Concomitant]
     Indication: MIGRAINE
     Dosage: 50 MG, AS NECESSARY
     Route: 048

REACTIONS (4)
  - Throat tightness [Not Recovered/Not Resolved]
  - Urticaria [Not Recovered/Not Resolved]
  - Local swelling [Not Recovered/Not Resolved]
  - Oropharyngeal discomfort [Not Recovered/Not Resolved]
